FAERS Safety Report 9507072 (Version 1)
Quarter: 2013Q1

REPORT INFORMATION
  Report Type: Spontaneous
  Country: US (occurrence: None)
  Receive Date: 20130305
  Receipt Date: 20130305
  Transmission Date: 20140127
  Serious: Yes (Other)
  Sender: FDA-Public Use
  Company Number: 163-21880-12091014

PATIENT
  Age: 50 Year
  Sex: Male

DRUGS (2)
  1. REVLIMID [Concomitant]
     Indication: PLASMA CELL MYELOMA
     Dosage: 5 MG , 1 IN 1 D, PO
     Dates: start: 20120628
  2. VITAMIN D (ERGOCALCIFEROL) [Concomitant]

REACTIONS (1)
  - Pigmentation disorder [None]
